FAERS Safety Report 17876262 (Version 1)
Quarter: 2020Q2

REPORT INFORMATION
  Report Type: Spontaneous
  Country: SE (occurrence: SE)
  Receive Date: 20200609
  Receipt Date: 20200609
  Transmission Date: 20200714
  Serious: Yes (Disabling)
  Sender: FDA-Public Use
  Company Number: SE-ALLERGAN-2022014US

PATIENT
  Sex: Female

DRUGS (1)
  1. MESALAZINE UNK [Suspect]
     Active Substance: MESALAMINE
     Indication: CROHN^S DISEASE
     Dosage: VARYING DOSE, REPORTER STATES 2.4 GRAMS MAXIMUM DOSE DURING RELAPSES AND 1.6 GRAMS OF THERAPY
     Route: 048
     Dates: start: 2018

REACTIONS (2)
  - Pancytopenia [Recovered/Resolved with Sequelae]
  - Renal failure [Recovered/Resolved with Sequelae]

NARRATIVE: CASE EVENT DATE: 20200512
